FAERS Safety Report 4837974-0 (Version None)
Quarter: 2005Q4

REPORT INFORMATION
  Report Type: 
  Country: None (occurrence: None)
  Receive Date: 20051128
  Receipt Date: 20051115
  Transmission Date: 20060501
  Serious: Yes (Other)
  Sender: FDA-Public Use
  Company Number: NL-ROCHE-424898

PATIENT
  Age: 58 Year
  Sex: Male

DRUGS (4)
  1. CAPECITABINE [Suspect]
     Dosage: DAYS 1-14 Q 28 DAYS
     Route: 048
     Dates: start: 20051012, end: 20051016
  2. BEVACIZUMAB [Suspect]
     Indication: COLORECTAL CANCER
     Route: 042
     Dates: start: 20051012, end: 20051012
  3. OXALIPLATIN [Suspect]
     Indication: COLORECTAL CANCER
     Route: 042
     Dates: start: 20051012, end: 20051012
  4. CETUXIMAB [Suspect]
     Route: 042
     Dates: start: 20051012, end: 20051012

REACTIONS (3)
  - CHEST PAIN [None]
  - PERICARDITIS [None]
  - TROPONIN [None]
